FAERS Safety Report 4987209-3 (Version None)
Quarter: 2006Q2

REPORT INFORMATION
  Report Type: 
  Country: None (occurrence: None)
  Receive Date: 20060501
  Receipt Date: 20060418
  Transmission Date: 20061013
  Serious: Yes (Hospitalization)
  Sender: FDA-Public Use
  Company Number: MX-MERCK-0604MEX00016

PATIENT
  Age: 14 Year
  Sex: Female

DRUGS (3)
  1. CORTICOSTEROIDS (UNSPECIFIED) [Concomitant]
     Indication: ALLERGIC GRANULOMATOUS ANGIITIS
     Route: 055
  2. CORTICOSTEROIDS (UNSPECIFIED) [Concomitant]
     Route: 048
  3. SINGULAIR [Suspect]
     Indication: ALLERGIC GRANULOMATOUS ANGIITIS
     Route: 065

REACTIONS (11)
  - ALANINE AMINOTRANSFERASE INCREASED [None]
  - ASPARTATE AMINOTRANSFERASE INCREASED [None]
  - BLOOD IMMUNOGLOBULIN E INCREASED [None]
  - CARDIOMEGALY [None]
  - DRUG INEFFECTIVE [None]
  - GAMMA-GLUTAMYLTRANSFERASE INCREASED [None]
  - HAEMOGLOBIN DECREASED [None]
  - HAEMOLYSIS [None]
  - HYPERGAMMAGLOBULINAEMIA [None]
  - PERICARDIAL EFFUSION [None]
  - PLATELET COUNT INCREASED [None]
